FAERS Safety Report 5625703-2 (Version None)
Quarter: 2008Q1

REPORT INFORMATION
  Report Type: 
  Country: None (occurrence: None)
  Receive Date: 20080207
  Receipt Date: 20080207
  Transmission Date: 20080703
  Serious: Yes (Disabling, Other)
  Sender: FDA-Public Use
  Company Number: None

PATIENT
  Sex: Female
  Weight: 77.1115 kg

DRUGS (2)
  1. PRIMIDONE [Suspect]
     Indication: ESSENTIAL TREMOR
     Dosage: 1 DAILY
     Dates: start: 19980101, end: 20070121
  2. PRIMIDONE [Suspect]
     Indication: ESSENTIAL TREMOR
     Dosage: 2 TABLETS TWICE A DAY FOR ONE WE;  1 TABLET TWICE A DAY SECOND WEEK
     Dates: start: 19980101, end: 20070121

REACTIONS (12)
  - BLOOD CHOLESTEROL INCREASED [None]
  - DEPRESSION [None]
  - DUPUYTREN'S CONTRACTURE [None]
  - DYSPHONIA [None]
  - EYE HAEMORRHAGE [None]
  - MUSCULAR WEAKNESS [None]
  - OSTEOPOROSIS [None]
  - PAIN [None]
  - PERIARTHRITIS [None]
  - URINARY BLADDER HAEMORRHAGE [None]
  - VISUAL ACUITY REDUCED [None]
  - VITAMIN B12 DEFICIENCY [None]
